FAERS Safety Report 6816990-3 (Version None)
Quarter: 2010Q3

REPORT INFORMATION
  Report Type: 
  Country: None (occurrence: None)
  Receive Date: 20100706
  Receipt Date: 20100623
  Transmission Date: 20110219
  Serious: Yes (Other)
  Sender: FDA-Public Use
  Company Number: PHHY2009CA21626

PATIENT
  Sex: Female

DRUGS (1)
  1. SANDOSTATIN LAR [Suspect]
     Indication: ACROMEGALY
     Dosage: 20 MG, EVERY 10 DAYS
     Route: 030
     Dates: start: 20080604

REACTIONS (4)
  - INSULIN-LIKE GROWTH FACTOR INCREASED [None]
  - INTESTINAL OBSTRUCTION [None]
  - PAIN [None]
  - THYROID HORMONE REPLACEMENT THERAPY [None]
